FAERS Safety Report 25152170 (Version 1)
Quarter: 2025Q2

REPORT INFORMATION
  Report Type: Spontaneous
  Country: CN (occurrence: CN)
  Receive Date: 20250402
  Receipt Date: 20250402
  Transmission Date: 20250717
  Serious: Yes (Other)
  Sender: PFIZER
  Company Number: CN-PFIZER INC-PV202500039708

PATIENT
  Age: 74 Year
  Sex: Male
  Weight: 43 kg

DRUGS (2)
  1. VFEND [Suspect]
     Active Substance: VORICONAZOLE
     Indication: Infection
     Dosage: 200 MG, 2X/DAY
     Route: 041
     Dates: start: 20250319, end: 20250320
  2. VFEND [Suspect]
     Active Substance: VORICONAZOLE
     Indication: Pneumonia

REACTIONS (4)
  - Confusional state [Recovering/Resolving]
  - Chromatopsia [Recovering/Resolving]
  - Disorientation [Recovering/Resolving]
  - Blood pressure decreased [Recovering/Resolving]

NARRATIVE: CASE EVENT DATE: 20250320
